FAERS Safety Report 15279987 (Version 1)
Quarter: 2018Q3

REPORT INFORMATION
  Report Type: Spontaneous
  Country: US (occurrence: US)
  Receive Date: 20180815
  Receipt Date: 20180815
  Transmission Date: 20181010
  Serious: No
  Sender: FDA-Public Use
  Company Number: US-TARO-2018TAR00471

PATIENT
  Age: 33 Year
  Sex: Female
  Weight: 56.69 kg

DRUGS (2)
  1. BENADRYL [Concomitant]
     Active Substance: DIPHENHYDRAMINE HYDROCHLORIDE
     Indication: DERMATITIS CONTACT
     Dosage: UNK
     Dates: start: 2018
  2. CLOBETASOL PROPIONATE CREAM USP 0.05% [Suspect]
     Active Substance: CLOBETASOL PROPIONATE
     Indication: DERMATITIS CONTACT
     Dosage: AMOUNT TO COVER RASH, 4X/DAY AS NEEDED
     Route: 061
     Dates: start: 20180528, end: 2018

REACTIONS (2)
  - Pruritus [Not Recovered/Not Resolved]
  - Inappropriate schedule of drug administration [Recovered/Resolved]

NARRATIVE: CASE EVENT DATE: 2018
